FAERS Safety Report 9255576 (Version 4)
Quarter: 2014Q1

REPORT INFORMATION
  Report Type: Spontaneous
  Country: US (occurrence: US)
  Receive Date: 20130425
  Receipt Date: 20140117
  Transmission Date: 20141002
  Serious: Yes (Other)
  Sender: FDA-Public Use
  Company Number: US-GLAXOSMITHKLINE-A1020802A

PATIENT
  Age: 50 Year
  Sex: Male

DRUGS (6)
  1. POTIGA [Suspect]
     Indication: CONVULSION
     Dosage: 50MG THREE TIMES PER DAY
     Route: 048
     Dates: start: 20130405
  2. VIMPAT [Suspect]
     Indication: PRODUCT USED FOR UNKNOWN INDICATION
  3. TEGRETOL [Concomitant]
  4. KEPPRA [Concomitant]
  5. LORAZEPAM [Concomitant]
  6. THYROID MEDICATION [Concomitant]

REACTIONS (16)
  - Convulsion [Recovered/Resolved]
  - Complex partial seizures [Unknown]
  - Confusional state [Unknown]
  - Headache [Unknown]
  - Speech disorder [Recovering/Resolving]
  - Soliloquy [Unknown]
  - Logorrhoea [Unknown]
  - Movement disorder [Unknown]
  - Eyelid disorder [Unknown]
  - Abnormal behaviour [Recovering/Resolving]
  - Hypokinesia [Unknown]
  - Drug ineffective [Unknown]
  - Dysuria [Recovering/Resolving]
  - Chromaturia [Recovering/Resolving]
  - Urine abnormality [Recovering/Resolving]
  - Urobilinogen urine increased [Recovering/Resolving]
